FAERS Safety Report 19250401 (Version 3)
Quarter: 2022Q4

REPORT INFORMATION
  Report Type: Spontaneous
  Country: US (occurrence: US)
  Receive Date: 20210513
  Receipt Date: 20221005
  Transmission Date: 20230112
  Serious: Yes (Death, Other)
  Sender: FDA-Public Use
  Company Number: US-SA-SAC20210511001086

PATIENT
  Age: 50 Year
  Sex: Female

DRUGS (1)
  1. ZANTAC [Suspect]
     Active Substance: RANITIDINE HYDROCHLORIDE
     Indication: Gastrooesophageal reflux disease
     Dosage: 300 MG, QD
     Dates: start: 199507, end: 201705

REACTIONS (3)
  - Bladder cancer stage IV [Fatal]
  - Ovarian cancer [Unknown]
  - Urethral cancer [Unknown]

NARRATIVE: CASE EVENT DATE: 20050101
